FAERS Safety Report 9286608 (Version 1)
Quarter: 2013Q2

REPORT INFORMATION
  Report Type: Spontaneous
  Country: IT (occurrence: IT)
  Receive Date: 20130513
  Receipt Date: 20130513
  Transmission Date: 20140414
  Serious: Yes (Hospitalization)
  Sender: FDA-Public Use
  Company Number: PHHY2013IT046469

PATIENT
  Age: 89 Year
  Sex: Female

DRUGS (2)
  1. CEFTRIAXONE [Suspect]
     Indication: BRONCHITIS
     Dosage: 7 G, UNK
     Route: 030
     Dates: start: 20121009, end: 20121015
  2. COUMADIN//WARFARIN SODIUM [Suspect]
     Indication: ATRIAL FIBRILLATION
     Dosage: 5 MG, PRN
     Route: 048
     Dates: start: 20111015, end: 20121015

REACTIONS (2)
  - Vertigo [Recovered/Resolved]
  - Nausea [Recovered/Resolved]
